FAERS Safety Report 8076037-0 (Version None)
Quarter: 2012Q1

REPORT INFORMATION
  Report Type: 
  Country: None (occurrence: None)
  Receive Date: 20120127
  Receipt Date: 20110526
  Transmission Date: 20120608
  Serious: No
  Sender: FDA-Public Use
  Company Number: US-GLAXOSMITHKLINE-A0929316A

PATIENT
  Age: 40 Year
  Sex: Male

DRUGS (5)
  1. VALTREX [Concomitant]
     Dosage: 1G PER DAY
  2. BUPROPION HYDROCHLORIDE [Suspect]
     Dosage: 150MG PER DAY
     Route: 048
  3. BUPROPION HYDROCHLORIDE [Suspect]
     Indication: DEPRESSION
     Dosage: 75MG THREE TIMES PER DAY
     Route: 048
     Dates: start: 20110401, end: 20110401
  4. METROGEL [Concomitant]
  5. RETIN-A [Concomitant]

REACTIONS (3)
  - DRUG ADMINISTRATION ERROR [None]
  - MEDICATION RESIDUE [None]
  - WRONG TECHNIQUE IN DRUG USAGE PROCESS [None]
